FAERS Safety Report 7740149-9 (Version None)
Quarter: 2011Q3

REPORT INFORMATION
  Report Type: 
  Country: None (occurrence: None)
  Receive Date: 20110909
  Receipt Date: 20110831
  Transmission Date: 20111222
  Serious: Yes (Life-Threatening, Other)
  Sender: FDA-Public Use
  Company Number: PL-ROCHE-791695

PATIENT
  Sex: Female
  Weight: 58 kg

DRUGS (2)
  1. HERCEPTIN [Suspect]
     Route: 042
     Dates: start: 20110519, end: 20110701
  2. DOCETAXEL [Concomitant]
     Route: 042
     Dates: start: 20110519, end: 20110701

REACTIONS (3)
  - CARDIOPULMONARY FAILURE [None]
  - PULMONARY OEDEMA [None]
  - EJECTION FRACTION DECREASED [None]
